FAERS Safety Report 11741492 (Version 9)
Quarter: 2017Q4

REPORT INFORMATION
  Report Type: Spontaneous
  Country: US (occurrence: US)
  Receive Date: 20151116
  Receipt Date: 20171211
  Transmission Date: 20180320
  Serious: Yes (Congenital Anomaly, Other)
  Sender: FDA-Public Use
  Company Number: PHEH2015US022921

PATIENT
  Sex: Male

DRUGS (3)
  1. ZOFRAN [Suspect]
     Active Substance: ONDANSETRON HYDROCHLORIDE
     Indication: FOETAL EXPOSURE DURING PREGNANCY
     Route: 064
  2. ONDANSETRON [Suspect]
     Active Substance: ONDANSETRON
     Indication: FOETAL EXPOSURE DURING PREGNANCY
     Route: 064
  3. ONDANSETRONE DR. REDDY^S [Suspect]
     Active Substance: ONDANSETRON HYDROCHLORIDE
     Indication: FOETAL EXPOSURE DURING PREGNANCY
     Dosage: MOTHER DOSE: 04 MG, UNK
     Route: 064

REACTIONS (27)
  - Atrial septal defect [Unknown]
  - Foetal exposure during pregnancy [Unknown]
  - Pain [Unknown]
  - Upper respiratory tract infection [Unknown]
  - Bronchitis [Unknown]
  - Anxiety [Unknown]
  - Right atrial enlargement [Unknown]
  - Right ventricular dilatation [Unknown]
  - Anhedonia [Unknown]
  - Premature baby [Unknown]
  - Pleural effusion [Unknown]
  - Gastrooesophageal reflux disease [Unknown]
  - Prepuce redundant [Unknown]
  - Pericardial effusion [Unknown]
  - Right ventricular enlargement [Unknown]
  - Congenital anomaly [Unknown]
  - Bundle branch block right [Unknown]
  - Injury [Unknown]
  - Left-to-right cardiac shunt [Unknown]
  - Phimosis [Unknown]
  - Chordee [Unknown]
  - Skull malformation [Unknown]
  - Congenital musculoskeletal anomaly [Unknown]
  - Emotional distress [Unknown]
  - Cardiac murmur [Unknown]
  - Otitis media [Unknown]
  - Rhinitis [Unknown]
